FAERS Safety Report 9954816 (Version 1)
Quarter: 2014Q1

REPORT INFORMATION
  Report Type: Report from Study
  Country: US (occurrence: US)
  Receive Date: 20140304
  Receipt Date: 20140304
  Transmission Date: 20141002
  Serious: No
  Sender: FDA-Public Use
  Company Number: US-ABBVIE-13P-163-1083653-00

PATIENT
  Sex: Female

DRUGS (1)
  1. HUMIRA [Suspect]
     Indication: PSORIATIC ARTHROPATHY
     Route: 058
     Dates: start: 20130115, end: 20130424

REACTIONS (5)
  - Oropharyngeal pain [Unknown]
  - Night sweats [Unknown]
  - Productive cough [Unknown]
  - Fatigue [Unknown]
  - Drug effect incomplete [Unknown]
